FAERS Safety Report 25462619 (Version 3)
Quarter: 2025Q2

REPORT INFORMATION
  Report Type: Spontaneous
  Country: US (occurrence: US)
  Receive Date: 20250620
  Receipt Date: 20250623
  Transmission Date: 20250717
  Serious: No
  Sender: PFIZER
  Company Number: US-PFIZER INC-202500124606

PATIENT
  Age: 73 Year
  Sex: Female

DRUGS (8)
  1. IBRANCE [Suspect]
     Active Substance: PALBOCICLIB
     Route: 048
     Dates: start: 20250212, end: 20250613
  2. LEVOTHYROXINE [Concomitant]
     Active Substance: LEVOTHYROXINE
  3. ATORVASTATIN [Concomitant]
     Active Substance: ATORVASTATIN
  4. TRESIBA [Concomitant]
     Active Substance: INSULIN DEGLUDEC
  5. NOVOLOG [Concomitant]
     Active Substance: INSULIN ASPART
  6. CARVEDILOL [Concomitant]
     Active Substance: CARVEDILOL
  7. FUROSEMIDE [Concomitant]
     Active Substance: FUROSEMIDE
  8. ELIQUIS [Concomitant]
     Active Substance: APIXABAN

REACTIONS (1)
  - White blood cell count decreased [Recovered/Resolved]

NARRATIVE: CASE EVENT DATE: 20250613
